FAERS Safety Report 14823249 (Version 2)
Quarter: 2018Q4

REPORT INFORMATION
  Report Type: Spontaneous
  Country: US (occurrence: US)
  Receive Date: 20180427
  Receipt Date: 20181204
  Transmission Date: 20190204
  Serious: Yes (Other)
  Sender: FDA-Public Use
  Company Number: US-ASTRAZENECA-2018SE50463

PATIENT
  Age: 47 Year
  Sex: Male
  Weight: 108.9 kg

DRUGS (37)
  1. NEXIUM [Suspect]
     Active Substance: ESOMEPRAZOLE MAGNESIUM
     Indication: GASTROOESOPHAGEAL REFLUX DISEASE
     Route: 048
     Dates: start: 20070102, end: 2011
  2. LISINOPRIL. [Concomitant]
     Active Substance: LISINOPRIL
     Indication: BLOOD PRESSURE MEASUREMENT
     Dates: start: 2010
  3. SIMETHICONE (DIMETHICONE) [Concomitant]
     Active Substance: DIMETHICONE
     Indication: FLATULENCE
     Dates: start: 2007, end: 2013
  4. KALETRA [Concomitant]
     Active Substance: LOPINAVIR\RITONAVIR
     Indication: HIV ANTIBODY
     Dates: start: 2006, end: 2013
  5. FENTANYL. [Concomitant]
     Active Substance: FENTANYL
     Indication: PAIN
     Dates: start: 2010, end: 2011
  6. KETOCONAZOLE. [Concomitant]
     Active Substance: KETOCONAZOLE
     Dates: start: 2007, end: 2010
  7. HYDROXYZINE [Concomitant]
     Active Substance: HYDROXYZINE HYDROCHLORIDE
  8. DARUNAVIR [Concomitant]
     Active Substance: DARUNAVIR
     Indication: HIV ANTIBODY
     Dates: start: 2014, end: 2017
  9. LORATADINE. [Concomitant]
     Active Substance: LORATADINE
  10. IBUPROFEN. [Concomitant]
     Active Substance: IBUPROFEN
  11. PRIMAQUINE [Concomitant]
     Active Substance: PRIMAQUINE PHOSPHATE
  12. DONNATAL [Concomitant]
     Active Substance: ATROPINE SULFATE\HYOSCYAMINE SULFATE\PHENOBARBITAL\SCOPOLAMINE HYDROBROMIDE
  13. RANITIDINE. [Concomitant]
     Active Substance: RANITIDINE
     Indication: GASTROOESOPHAGEAL REFLUX DISEASE
     Dates: start: 2006, end: 2010
  14. POTASSIUM HCL [Concomitant]
     Indication: HYPOKALAEMIA
     Dates: start: 2006, end: 2016
  15. ZIDOVUDINE. [Concomitant]
     Active Substance: ZIDOVUDINE
  16. CLEOCIN [Concomitant]
     Active Substance: CLINDAMYCIN PHOSPHATE
  17. TYLENOL [Concomitant]
     Active Substance: ACETAMINOPHEN
     Indication: PAIN
     Dates: start: 2006
  18. BENADRYL [Concomitant]
     Active Substance: DIPHENHYDRAMINE HYDROCHLORIDE
     Indication: MULTIPLE ALLERGIES
     Dates: start: 2006
  19. RITONAVIR. [Concomitant]
     Active Substance: RITONAVIR
     Indication: HIV ANTIBODY
     Dates: start: 2006
  20. DARUNAVIR [Concomitant]
     Active Substance: DARUNAVIR
  21. CITALOPRAM [Concomitant]
     Active Substance: CITALOPRAM HYDROBROMIDE
  22. MIDAZOLAM HYDROCHLORIDE. [Concomitant]
     Active Substance: MIDAZOLAM HYDROCHLORIDE
  23. TRUVADA [Concomitant]
     Active Substance: EMTRICITABINE\TENOFOVIR DISOPROXIL FUMARATE
     Indication: HIV ANTIBODY
     Dates: start: 2013, end: 2017
  24. FUROSEMIDE. [Concomitant]
     Active Substance: FUROSEMIDE
     Indication: FLUID RETENTION
     Dates: start: 2009, end: 2017
  25. LAMIVUDINE. [Concomitant]
     Active Substance: LAMIVUDINE
     Indication: HIV ANTIBODY
     Dates: start: 2007, end: 2011
  26. MILK OF MAGNESIS [Concomitant]
     Dates: start: 2006
  27. MAALOX ANTACID [Concomitant]
     Active Substance: ALUMINUM HYDROXIDE\DIMETHICONE\MAGNESIUM HYDROXIDE
     Dates: start: 2007
  28. CLINDAMYCIN. [Concomitant]
     Active Substance: CLINDAMYCIN
  29. STAVUDINE. [Concomitant]
     Active Substance: STAVUDINE
  30. VENLAFAXIN E XR [Concomitant]
  31. ROSUVASTATIN. [Concomitant]
     Active Substance: ROSUVASTATIN
     Indication: BLOOD CHOLESTEROL
     Dates: start: 2015, end: 2017
  32. NISOLDIPINE. [Concomitant]
     Active Substance: NISOLDIPINE
     Indication: BLOOD PRESSURE MEASUREMENT
     Dates: start: 2006, end: 2010
  33. DAPSONE. [Concomitant]
     Active Substance: DAPSONE
  34. METRONIDAZOLE. [Concomitant]
     Active Substance: METRONIDAZOLE
  35. ATROVENT [Concomitant]
     Active Substance: IPRATROPIUM BROMIDE
  36. LEVAQUIN [Concomitant]
     Active Substance: LEVOFLOXACIN
  37. ATROPINE. [Concomitant]
     Active Substance: ATROPINE

REACTIONS (1)
  - Chronic kidney disease [Not Recovered/Not Resolved]

NARRATIVE: CASE EVENT DATE: 2009
